FAERS Safety Report 14225919 (Version 1)
Quarter: 2017Q4

REPORT INFORMATION
  Report Type: Spontaneous
  Country: VN (occurrence: VN)
  Receive Date: 20171127
  Receipt Date: 20171127
  Transmission Date: 20180321
  Serious: Yes (Other)
  Sender: FDA-Public Use
  Company Number: VN-ASTELLAS-2017US048828

PATIENT
  Sex: Male

DRUGS (1)
  1. TARCEVA [Suspect]
     Active Substance: ERLOTINIB HYDROCHLORIDE
     Indication: LUNG NEOPLASM MALIGNANT
     Dosage: UNK UNK, ONCE DAILY
     Route: 048

REACTIONS (6)
  - Acne [Unknown]
  - Ageusia [Unknown]
  - Burn oral cavity [Unknown]
  - Decreased appetite [Unknown]
  - Rash [Unknown]
  - Tongue blistering [Unknown]
